FAERS Safety Report 4296937-7 (Version None)
Quarter: 2004Q1

REPORT INFORMATION
  Report Type: 
  Country: None (occurrence: None)
  Receive Date: 20040213
  Receipt Date: 20040205
  Transmission Date: 20041129
  Serious: Yes (Other)
  Sender: FDA-Public Use
  Company Number: 2004-02-0277

PATIENT
  Age: 79 Year
  Sex: Male

DRUGS (3)
  1. CLARINEX [Suspect]
     Indication: RHINITIS
     Dosage: 1 TAB Q DAY
  2. ACETAMINOPHEN [Concomitant]
  3. MAGNESIUM [Concomitant]

REACTIONS (3)
  - EXANTHEM [None]
  - PRURITUS [None]
  - SKIN DESQUAMATION [None]
